FAERS Safety Report 24912718 (Version 1)
Quarter: 2025Q1

REPORT INFORMATION
  Report Type: Spontaneous
  Country: ES (occurrence: ES)
  Receive Date: 20250131
  Receipt Date: 20250131
  Transmission Date: 20250408
  Serious: Yes (Hospitalization)
  Sender: NOVARTIS
  Company Number: None

PATIENT
  Age: 89 Year
  Sex: Male
  Weight: 75 kg

DRUGS (2)
  1. VALSARTAN [Suspect]
     Active Substance: VALSARTAN
     Indication: Hypertension
     Dosage: 80 MG, Q24H (80MG CADA 24 HORAS)
     Route: 048
     Dates: start: 20240804, end: 20241104
  2. JENTADUETO [Suspect]
     Active Substance: LINAGLIPTIN\METFORMIN HYDROCHLORIDE
     Indication: Diabetes mellitus
     Dosage: 1 DOSAGE FORM, Q12H (COMPRIMIDOS RECUBIERTOS CON PELICULA, 60 COMPRIMIDOS,1 COMPRIMIDO CADA 12 HORAS
     Route: 048
     Dates: start: 20240813, end: 20241104

REACTIONS (3)
  - Hyperkalaemia [Recovered/Resolved]
  - Metabolic acidosis [Recovered/Resolved]
  - Respiratory alkalosis [Recovered/Resolved]

NARRATIVE: CASE EVENT DATE: 20241104
